FAERS Safety Report 9168095 (Version 1)
Quarter: 2013Q1

REPORT INFORMATION
  Report Type: Spontaneous
  Country: US (occurrence: US)
  Receive Date: 20130318
  Receipt Date: 20130318
  Transmission Date: 20140127
  Serious: No
  Sender: FDA-Public Use
  Company Number: US-PFIZER INC-2013085996

PATIENT
  Age: 59 Year
  Sex: Female
  Weight: 49.89 kg

DRUGS (2)
  1. PROTONIX [Suspect]
     Indication: GASTROOESOPHAGEAL REFLUX DISEASE
     Dosage: 40 MG, 2X/DAY
  2. DURAGESIC [Concomitant]
     Indication: PAIN
     Dosage: UNK

REACTIONS (1)
  - Thrombosis [Recovered/Resolved]
